FAERS Safety Report 4404911-2 (Version None)
Quarter: 2004Q3

REPORT INFORMATION
  Report Type: 
  Country: None (occurrence: None)
  Receive Date: 20040716
  Receipt Date: 20040706
  Transmission Date: 20050211
  Serious: Yes (Hospitalization)
  Sender: FDA-Public Use
  Company Number: 2004-02970

PATIENT
  Age: 58 Year
  Sex: Female

DRUGS (4)
  1. OXYTROL [Suspect]
     Indication: URINARY INCONTINENCE
     Dosage: 1 PATCH, SINGLE, TRANSDERMAL
     Route: 062
     Dates: start: 20040618, end: 20040620
  2. BENICAR [Concomitant]
  3. AMBIEN [Concomitant]
  4. TYLENOL [Concomitant]

REACTIONS (2)
  - BONE PAIN [None]
  - PSYCHOTIC DISORDER [None]
